FAERS Safety Report 4817609-3 (Version None)
Quarter: 2005Q4

REPORT INFORMATION
  Report Type: 
  Country: None (occurrence: None)
  Receive Date: 20051031
  Receipt Date: 20051021
  Transmission Date: 20060501
  Serious: Yes (Hospitalization)
  Sender: FDA-Public Use
  Company Number: 2005-10-1249

PATIENT
  Age: 93 Year
  Sex: Male

DRUGS (4)
  1. ISOSORBIDE MONONITRATE [Suspect]
     Dosage: 60 MG BID ORAL
     Route: 048
  2. ASPIRIN [Concomitant]
  3. FERROUS SULFATE TAB [Concomitant]
  4. BUMETANIDE [Concomitant]

REACTIONS (2)
  - FALL [None]
  - HYPOTENSION [None]
